FAERS Safety Report 6958991-0 (Version None)
Quarter: 2010Q3

REPORT INFORMATION
  Report Type: 
  Country: None (occurrence: None)
  Receive Date: 20100831
  Receipt Date: 20100823
  Transmission Date: 20110219
  Serious: Yes (Disabling, Other)
  Sender: FDA-Public Use
  Company Number: CA-PFIZER INC-2010097428

PATIENT
  Age: 37 Year
  Sex: Male
  Weight: 75 kg

DRUGS (5)
  1. LIPITOR [Suspect]
     Indication: BLOOD CHOLESTEROL INCREASED
     Dosage: 10 MG, 1X/DAY
     Dates: start: 20060101, end: 20090101
  2. LIPITOR [Suspect]
     Dosage: 20 MG, 1X/DAY
     Dates: start: 20090101, end: 20100701
  3. ALTACE [Concomitant]
     Indication: PROPHYLAXIS
     Dosage: 10 MG, 1X/DAY
  4. LANTUS [Concomitant]
     Indication: DIABETES MELLITUS
     Dosage: UNK, DAILY
  5. NOVORAPID [Concomitant]
     Indication: DIABETES MELLITUS
     Dosage: UNK, FOUR TIMES DAILY

REACTIONS (2)
  - GROIN PAIN [None]
  - PAIN IN EXTREMITY [None]
